FAERS Safety Report 7836961-8 (Version None)
Quarter: 2011Q4

REPORT INFORMATION
  Report Type: 
  Country: None (occurrence: None)
  Receive Date: 20111024
  Receipt Date: 20110209
  Transmission Date: 20120403
  Serious: No
  Sender: FDA-Public Use
  Company Number: US-ABBOTT-11P-163-0695267-00

PATIENT
  Sex: Female

DRUGS (5)
  1. LUPRON DEPOT [Suspect]
     Indication: ADENOMYOSIS
     Dosage: ONCE
  2. LUPRON DEPOT [Suspect]
     Indication: ENDOMETRIOSIS
     Dosage: ONCE
     Dates: start: 20100801
  3. LYRICA [Suspect]
     Indication: PAIN
  4. LUPRON DEPOT [Suspect]
     Dates: start: 20100901, end: 20100901
  5. LYRICA [Suspect]
     Indication: ENDOMETRIOSIS
     Dates: start: 20101222

REACTIONS (4)
  - ARTHRALGIA [None]
  - PAIN IN EXTREMITY [None]
  - GAIT DISTURBANCE [None]
  - ARTHROPATHY [None]
